FAERS Safety Report 8504053-0 (Version None)
Quarter: 2012Q3

REPORT INFORMATION
  Report Type: 
  Country: None (occurrence: None)
  Receive Date: 20120711
  Receipt Date: 20120702
  Transmission Date: 20120928
  Serious: Yes (Hospitalization)
  Sender: FDA-Public Use
  Company Number: IT-BRISTOL-MYERS SQUIBB COMPANY-16731622

PATIENT
  Age: 96 Year
  Sex: Female

DRUGS (5)
  1. TRENTAL [Concomitant]
     Dosage: 1 DOSE
  2. LASIX [Concomitant]
     Dosage: 1 DOSE
  3. LANOXIN [Concomitant]
     Dosage: 1 DOSE
  4. ALDACTONE [Concomitant]
  5. COUMADIN [Suspect]
     Indication: PULMONARY EMBOLISM
     Dosage: 1 DOSE
     Route: 048
     Dates: start: 20090101, end: 20120528

REACTIONS (2)
  - INTERNATIONAL NORMALISED RATIO INCREASED [None]
  - IRON DEFICIENCY ANAEMIA [None]
